FAERS Safety Report 4893420-2 (Version None)
Quarter: 2006Q1

REPORT INFORMATION
  Report Type: 
  Country: None (occurrence: None)
  Receive Date: 20060127
  Receipt Date: 20051024
  Transmission Date: 20060701
  Serious: Yes (Life-Threatening, Hospitalization)
  Sender: FDA-Public Use
  Company Number: GBWYE084524OCT05

PATIENT
  Sex: Male
  Weight: 76 kg

DRUGS (6)
  1. ENBREL [Suspect]
     Indication: RHEUMATOID ARTHRITIS
     Route: 058
     Dates: start: 20041012, end: 20050530
  2. SULFASALAZINE [Concomitant]
  3. NAPROXEN [Concomitant]
  4. PARACETAMOL [Concomitant]
  5. LEFLUNOMIDE [Concomitant]
  6. PREDNISOLONE [Concomitant]

REACTIONS (1)
  - RESPIRATORY FAILURE [None]
